FAERS Safety Report 5517124-8 (Version None)
Quarter: 2007Q4

REPORT INFORMATION
  Report Type: 
  Country: None (occurrence: None)
  Receive Date: 20071114
  Receipt Date: 20071105
  Transmission Date: 20080405
  Serious: Yes (Other)
  Sender: FDA-Public Use
  Company Number: B0443070A

PATIENT
  Age: 35 Year
  Sex: Female
  Weight: 71.6 kg

DRUGS (2)
  1. ALBENDAZOLE [Suspect]
     Indication: HELMINTHIC INFECTION
     Dosage: 400MG SINGLE DOSE
     Route: 048
     Dates: start: 20040419, end: 20040419
  2. PRAZIQUANTEL [Suspect]
     Indication: HELMINTHIC INFECTION
     Dosage: 40MGK SINGLE DOSE
     Route: 048
     Dates: start: 20040419, end: 20040419

REACTIONS (2)
  - DRUG EXPOSURE DURING PREGNANCY [None]
  - STILLBIRTH [None]
